FAERS Safety Report 10050234 (Version 2)
Quarter: 2014Q2

REPORT INFORMATION
  Report Type: Spontaneous
  Country: US (occurrence: US)
  Receive Date: 20140401
  Receipt Date: 20140521
  Transmission Date: 20141212
  Serious: Yes (Hospitalization)
  Sender: FDA-Public Use
  Company Number: US-B.I. PHARMACEUTICALS,INC./RIDGEFIELD-2014-BI-13648BP

PATIENT
  Age: 47 Year
  Sex: Male
  Weight: 77.11 kg

DRUGS (3)
  1. PRADAXA [Suspect]
     Indication: ATRIAL FIBRILLATION
     Dosage: 300 MG
     Route: 048
     Dates: start: 201312, end: 20140305
  2. ENALAPRIL [Concomitant]
     Dosage: 40 MG
     Route: 065
  3. BYSTOLIC [Concomitant]
     Dosage: 10 MG
     Route: 065

REACTIONS (11)
  - Peripheral embolism [Recovered/Resolved]
  - Intracardiac thrombus [Not Recovered/Not Resolved]
  - Ischaemic stroke [Not Recovered/Not Resolved]
  - Haematochezia [Recovered/Resolved]
  - Gastrointestinal haemorrhage [Recovered/Resolved]
  - Haematuria [Recovered/Resolved]
  - Blood urine present [Unknown]
  - Haematochezia [Unknown]
  - Abdominal discomfort [Unknown]
  - Headache [Unknown]
  - Fatigue [Unknown]
